FAERS Safety Report 8991109 (Version 1)
Quarter: 2012Q4

REPORT INFORMATION
  Report Type: Spontaneous
  Country: GB (occurrence: None)
  Receive Date: 20121220
  Receipt Date: 20121220
  Transmission Date: 20130627
  Serious: Yes (Other)
  Sender: FDA-Public Use
  Company Number: GER/UKI/12/0027089

PATIENT
  Age: 67 Year
  Sex: Male
  Weight: 70.6 kg

DRUGS (8)
  1. CLOPIDOGREL (CLOPIDOGREL) [Suspect]
     Indication: DRUG USE FOR UNKNOWN INDICATION
  2. ASPIRIN (ACETYLSALICYLIC ACID) [Concomitant]
  3. BETAMETHASONE (BETAMETHASONE VALERATE) [Concomitant]
  4. CARBOMER 980 (CARBOMER) [Concomitant]
  5. DIPROBASE (DIPROBASE /01132701/) [Concomitant]
  6. ISOSORBIDE MONONITRATE (ISOSORBIDE MONONITRATE) [Concomitant]
  7. PRAVASTATIN (PRAVASTATIN) [Concomitant]
  8. RAMIPRIL (RAMIPRIL) [Concomitant]

REACTIONS (1)
  - Raynaud^s phenomenon [None]
